FAERS Safety Report 25136118 (Version 1)
Quarter: 2025Q1

REPORT INFORMATION
  Report Type: Spontaneous
  Country: CN (occurrence: CN)
  Receive Date: 20250328
  Receipt Date: 20250328
  Transmission Date: 20250408
  Serious: Yes (Life-Threatening, Other)
  Sender: NOVARTIS
  Company Number: CN-002147023-NVSC2025CN051608

PATIENT
  Age: 73 Year
  Sex: Male
  Weight: 70 kg

DRUGS (1)
  1. SACUBITRIL\VALSARTAN [Suspect]
     Active Substance: SACUBITRIL\VALSARTAN
     Indication: Hypertension
     Dosage: 25.000 MG, BID
     Route: 048
     Dates: start: 20250317, end: 20250318

REACTIONS (7)
  - Prothrombin time prolonged [Recovering/Resolving]
  - International normalised ratio increased [Recovering/Resolving]
  - Renal injury [Unknown]
  - Activated partial thromboplastin time prolonged [Recovering/Resolving]
  - Blood creatinine increased [Unknown]
  - Hypotension [Unknown]
  - Coagulation time abnormal [Unknown]

NARRATIVE: CASE EVENT DATE: 20250318
